FAERS Safety Report 10744523 (Version 1)
Quarter: 2015Q1

REPORT INFORMATION
  Report Type: Spontaneous
  Country: US (occurrence: None)
  Receive Date: 20150126
  Receipt Date: 20150126
  Transmission Date: 20150721
  Serious: No
  Sender: FDA-Public Use
  Company Number: UNT-2015-00008

PATIENT
  Age: 54 Year
  Sex: Female
  Weight: 109.8 kg

DRUGS (2)
  1. TYVASO [Suspect]
     Active Substance: TREPROSTINIL
  2. TYVASO [Suspect]
     Active Substance: TREPROSTINIL

REACTIONS (3)
  - Device malfunction [None]
  - No adverse event [None]
  - Device battery issue [None]
